FAERS Safety Report 17772602 (Version 1)
Quarter: 2020Q2

REPORT INFORMATION
  Report Type: Spontaneous
  Country: CN (occurrence: CN)
  Receive Date: 20200512
  Receipt Date: 20200512
  Transmission Date: 20200714
  Serious: Yes (Hospitalization)
  Sender: FDA-Public Use
  Company Number: CN-009507513-2005CHN003114

PATIENT
  Age: 74 Year
  Sex: Female
  Weight: 55 kg

DRUGS (1)
  1. HYZAAR [Suspect]
     Active Substance: HYDROCHLOROTHIAZIDE\LOSARTAN POTASSIUM
     Indication: HYPERTENSION
     Dosage: 1 DOSAGE FORM, QD
     Route: 048
     Dates: start: 20200414, end: 20200420

REACTIONS (3)
  - Pruritus [Recovering/Resolving]
  - Papule [Recovering/Resolving]
  - Erythema [Recovering/Resolving]

NARRATIVE: CASE EVENT DATE: 20200421
